FAERS Safety Report 6734555-9 (Version None)
Quarter: 2010Q2

REPORT INFORMATION
  Report Type: 
  Country: None (occurrence: None)
  Receive Date: 20100520
  Receipt Date: 20100514
  Transmission Date: 20101027
  Serious: Yes (Other)
  Sender: FDA-Public Use
  Company Number: US-GENENTECH-301033

PATIENT
  Sex: Male

DRUGS (14)
  1. RANIBIZUMAB [Suspect]
     Indication: DIABETIC RETINAL OEDEMA
     Dosage: .5 UNK, PRN
     Route: 031
     Dates: start: 20100121
  2. TUMERIC [Concomitant]
     Indication: VITAMIN SUPPLEMENTATION
     Dosage: UNK
     Dates: start: 20090401
  3. LUTEIN [Concomitant]
     Indication: PROPHYLAXIS
     Dosage: UNK
     Dates: start: 20080701
  4. LECITHIN [Concomitant]
     Indication: PROPHYLAXIS
     Dosage: UNK
     Dates: end: 20090201
  5. VITAMIN B6 [Concomitant]
     Indication: MEDICAL DIET
     Dosage: UNK
     Dates: end: 20090201
  6. VITAMIN B-12 [Concomitant]
     Indication: MEDICAL DIET
     Dosage: UNK
     Dates: end: 20090201
  7. COENZYME Q10 [Concomitant]
     Indication: VITAMIN SUPPLEMENTATION
     Dosage: UNK
     Dates: start: 20080101
  8. FISH OIL [Concomitant]
     Indication: VITAMIN SUPPLEMENTATION
     Dosage: UNK
     Dates: start: 20090101, end: 20090801
  9. FLAXSEED OIL [Concomitant]
     Indication: VITAMIN SUPPLEMENTATION
     Dosage: UNK
     Dates: start: 20090901
  10. BILBERRY [Concomitant]
     Indication: VITAMIN SUPPLEMENTATION
     Dosage: UNK
     Dates: start: 20090901
  11. VITAMIN C [Concomitant]
     Indication: VITAMIN SUPPLEMENTATION
     Dosage: UNK
     Dates: start: 20090901
  12. HAWTHORNE BERRY [Concomitant]
     Indication: VITAMIN SUPPLEMENTATION
     Dosage: UNK
     Dates: start: 20090901
  13. KYOLIC GARLIC [Concomitant]
     Indication: VITAMIN SUPPLEMENTATION
     Dosage: UNK
     Dates: start: 20090601
  14. GINKGO BILOBA [Concomitant]
     Indication: VITAMIN SUPPLEMENTATION
     Dosage: UNK
     Dates: start: 20090101

REACTIONS (1)
  - VITREOUS HAEMORRHAGE [None]
